FAERS Safety Report 13929622 (Version 2)
Quarter: 2018Q2

REPORT INFORMATION
  Report Type: Spontaneous
  Country: FR (occurrence: FR)
  Receive Date: 20170901
  Receipt Date: 20180405
  Transmission Date: 20180711
  Serious: Yes (Life-Threatening, Hospitalization)
  Sender: FDA-Public Use
  Company Number: FR-B.I. PHARMACEUTICALS,INC./RIDGEFIELD-2017-BI-047676

PATIENT
  Age: 1 Year
  Sex: Male
  Weight: 8.3 kg

DRUGS (1)
  1. CATAPRESSAN [Suspect]
     Active Substance: CLONIDINE
     Indication: DIAGNOSTIC PROCEDURE
     Route: 042
     Dates: start: 20170818, end: 20170818

REACTIONS (5)
  - Incorrect drug dosage form administered [Recovered/Resolved]
  - Medication error [Recovered/Resolved]
  - Hypotension [Recovered/Resolved]
  - Dyspnoea [Recovered/Resolved]
  - Miosis [Recovered/Resolved]

NARRATIVE: CASE EVENT DATE: 20170818
